FAERS Safety Report 13511737 (Version 5)
Quarter: 2017Q3

REPORT INFORMATION
  Report Type: Spontaneous
  Country: US (occurrence: US)
  Receive Date: 20170504
  Receipt Date: 20170705
  Transmission Date: 20171127
  Serious: Yes (Disabling)
  Sender: FDA-Public Use
  Company Number: US-JNJFOC-20170501112

PATIENT
  Age: 61 Year
  Sex: Female
  Weight: 82.1 kg

DRUGS (5)
  1. FENTANYL TRANSDERMAL SYSTEM [Suspect]
     Active Substance: FENTANYL
     Indication: FIBROMYALGIA
     Dosage: STARTED 2 YEARS AGO
     Route: 062
     Dates: end: 20170430
  2. FENTANYL TRANSDERMAL SYSTEM [Suspect]
     Active Substance: FENTANYL
     Indication: RHEUMATOID ARTHRITIS
     Route: 062
     Dates: start: 20170430
  3. FENTANYL TRANSDERMAL SYSTEM [Suspect]
     Active Substance: FENTANYL
     Indication: RHEUMATOID ARTHRITIS
     Dosage: STARTED 2 YEARS AGO
     Route: 062
     Dates: end: 20170430
  4. METFORMIN [Concomitant]
     Active Substance: METFORMIN HYDROCHLORIDE
     Indication: DIABETES MELLITUS
     Route: 065
  5. FENTANYL TRANSDERMAL SYSTEM [Suspect]
     Active Substance: FENTANYL
     Indication: FIBROMYALGIA
     Route: 062
     Dates: start: 20170430

REACTIONS (14)
  - Cold sweat [Recovered/Resolved]
  - Product quality issue [Unknown]
  - Hyperhidrosis [Unknown]
  - Abnormal loss of weight [Unknown]
  - Feeling cold [Recovered/Resolved]
  - Drug dose omission [Unknown]
  - Dysgeusia [Not Recovered/Not Resolved]
  - Wrong technique in product usage process [Unknown]
  - Therapeutic response unexpected [Unknown]
  - Malaise [Unknown]
  - Pain [Unknown]
  - Withdrawal syndrome [Recovered/Resolved]
  - Drug ineffective [Unknown]
  - Disability [Unknown]

NARRATIVE: CASE EVENT DATE: 2016
